FAERS Safety Report 9632224 (Version 1)
Quarter: 2013Q4

REPORT INFORMATION
  Report Type: Spontaneous
  Country: US (occurrence: US)
  Receive Date: 20131018
  Receipt Date: 20131018
  Transmission Date: 20140711
  Serious: Yes (Hospitalization, Other)
  Sender: FDA-Public Use
  Company Number: CHPA2013US015536

PATIENT
  Age: 62 Year
  Sex: Female

DRUGS (3)
  1. IBUPROFEN [Suspect]
     Indication: ARTHRALGIA
     Dosage: UNK, UNK
  2. CELEBREX [Suspect]
     Indication: ARTHRALGIA
     Dosage: UNK, UNK
  3. LORTAB [Suspect]
     Indication: ARTHRALGIA
     Dosage: UNK, PRN

REACTIONS (6)
  - Post procedural complication [Recovered/Resolved]
  - Hypertension [Not Recovered/Not Resolved]
  - Meniscus injury [Recovered/Resolved]
  - Gout [Not Recovered/Not Resolved]
  - Arthropathy [Recovered/Resolved]
  - Arthralgia [Recovered/Resolved]
